FAERS Safety Report 4993904-2 (Version None)
Quarter: 2006Q2

REPORT INFORMATION
  Report Type: 
  Country: None (occurrence: None)
  Receive Date: 20060503
  Receipt Date: 20060503
  Transmission Date: 20061013
  Serious: Yes (Hospitalization)
  Sender: FDA-Public Use
  Company Number: None

PATIENT
  Age: 79 Year
  Sex: Male

DRUGS (2)
  1. CAMPATH [Suspect]
     Indication: T-CELL LYMPHOMA
  2. CHOP [Suspect]
     Indication: T-CELL LYMPHOMA

REACTIONS (3)
  - CHEST DISCOMFORT [None]
  - NEUTROPENIA [None]
  - PYREXIA [None]
